FAERS Safety Report 17545855 (Version 3)
Quarter: 2020Q1

REPORT INFORMATION
  Report Type: Spontaneous
  Country: US (occurrence: US)
  Receive Date: 20200316
  Receipt Date: 20200324
  Transmission Date: 20200409
  Serious: Yes (Other)
  Sender: FDA-Public Use
  Company Number: US-PFIZER INC-2020110954

PATIENT
  Sex: Female

DRUGS (2)
  1. ARGININE HCL [Suspect]
     Active Substance: ARGININE HYDROCHLORIDE
     Indication: UREA CYCLE DISORDER
  2. ARGININE HCL [Suspect]
     Active Substance: ARGININE HYDROCHLORIDE
     Indication: HYPERAMMONAEMIA
     Dosage: UNK
     Route: 042

REACTIONS (4)
  - Vasodilatation [Unknown]
  - Neonatal hypotension [Unknown]
  - Off label use [Unknown]
  - Product use in unapproved indication [Unknown]
